FAERS Safety Report 8923244 (Version 1)
Quarter: 2012Q4

REPORT INFORMATION
  Report Type: 
  Country: US (occurrence: US)
  Receive Date: 20121123
  Receipt Date: 20121123
  Transmission Date: 20130627
  Serious: No
  Sender: FDA-Public Use
  Company Number: US-JNJFOC-20121002399

PATIENT
  Age: 59 Year
  Sex: Male

DRUGS (10)
  1. INVEGA SUSTENNA [Suspect]
     Indication: SCHIZOPHRENIA
     Route: 030
  2. INVEGA SUSTENNA [Suspect]
     Indication: SCHIZOPHRENIA
     Route: 030
  3. INVEGA SUSTENNA [Suspect]
     Indication: SCHIZOPHRENIA
     Route: 030
     Dates: start: 20120807
  4. AMLODIPINE [Concomitant]
     Route: 048
  5. BENZTROPINE [Concomitant]
     Route: 048
  6. FLOMAX [Concomitant]
     Route: 048
  7. CLONAZEPAM [Concomitant]
     Route: 048
  8. NAVANE [Concomitant]
     Route: 048
  9. TRIHEXYPHENIDYL [Concomitant]
     Route: 048
  10. NEXIUM [Concomitant]
     Route: 048

REACTIONS (3)
  - Psychotic disorder [Unknown]
  - Drug prescribing error [Unknown]
  - Inappropriate schedule of drug administration [Not Recovered/Not Resolved]
